FAERS Safety Report 4906775-7 (Version None)
Quarter: 2006Q1

REPORT INFORMATION
  Report Type: 
  Country: None (occurrence: None)
  Receive Date: 20060207
  Receipt Date: 20060120
  Transmission Date: 20060701
  Serious: Yes (Other)
  Sender: FDA-Public Use
  Company Number: CA200601003942

PATIENT
  Sex: Female

DRUGS (1)
  1. XIGRIS (DROTRECOGIN ALFA (ACTIVATED)) VIAL [Suspect]
     Dates: start: 20060101

REACTIONS (2)
  - DISSEMINATED INTRAVASCULAR COAGULATION [None]
  - SEPSIS [None]
